FAERS Safety Report 9226288 (Version 11)
Quarter: 2016Q4

REPORT INFORMATION
  Report Type: Spontaneous
  Country: US (occurrence: US)
  Receive Date: 20130411
  Receipt Date: 20161108
  Transmission Date: 20170207
  Serious: Yes (Hospitalization, Other)
  Sender: FDA-Public Use
  Company Number: US-009507513-1304USA003220

PATIENT
  Sex: Female

DRUGS (3)
  1. FOSAMAX [Suspect]
     Active Substance: ALENDRONATE SODIUM
     Indication: OSTEOPOROSIS
     Dosage: 70 MG, QW
     Route: 048
     Dates: start: 19990201, end: 200803
  2. ALENDRONATE SODIUM. [Suspect]
     Active Substance: ALENDRONATE SODIUM
     Dosage: 70 MG, QW
     Route: 048
     Dates: start: 201007, end: 2013
  3. ALENDRONATE SODIUM. [Suspect]
     Active Substance: ALENDRONATE SODIUM
     Indication: OSTEOPOROSIS
     Dosage: 70 MG, QW
     Route: 048
     Dates: start: 20080302, end: 201007

REACTIONS (22)
  - Cholecystectomy [Unknown]
  - Femur fracture [Recovered/Resolved]
  - Hand fracture [Unknown]
  - Foot fracture [Unknown]
  - Stress fracture [Unknown]
  - Foot fracture [Unknown]
  - Haemorrhagic anaemia [Unknown]
  - Foot operation [Unknown]
  - Fall [Unknown]
  - Atypical femur fracture [Unknown]
  - Gastrooesophageal reflux disease [Unknown]
  - Cellulitis [Unknown]
  - Colon operation [Unknown]
  - Hypothyroidism [Unknown]
  - Foot fracture [Unknown]
  - Hip fracture [Unknown]
  - Appendicectomy [Unknown]
  - Electrocardiogram ST-T change [Unknown]
  - Bursitis [Unknown]
  - Pain in extremity [Unknown]
  - Oesophagitis [Unknown]
  - Osteoarthritis [Unknown]

NARRATIVE: CASE EVENT DATE: 2006
